FAERS Safety Report 16264941 (Version 1)
Quarter: 2019Q2

REPORT INFORMATION
  Report Type: Spontaneous
  Country: US (occurrence: US)
  Receive Date: 20190502
  Receipt Date: 20190502
  Transmission Date: 20190711
  Serious: Yes (Other)
  Sender: FDA-Public Use
  Company Number: US-TARO PHARMACEUTICALS USA.,INC-2019SUN00096

PATIENT
  Age: 12 Year
  Sex: Male

DRUGS (2)
  1. NEOSPORIN [Concomitant]
     Active Substance: BACITRACIN ZINC\NEOMYCIN SULFATE\POLYMYXIN B SULFATE
     Indication: SKIN WOUND
     Dosage: UNK
     Route: 065
  2. TRIPLE ANTIBIOTIC (BACITRACIN ZINC\NEOMYCIN SULFATE\POLYMYXIN B SULF\PRAMOXINE) [Suspect]
     Active Substance: BACITRACIN ZINC\NEOMYCIN SULFATE\POLYMYXIN B SULFATE\PRAMOXINE HYDROCHLORIDE
     Indication: SKIN WOUND
     Dosage: UNK
     Route: 061

REACTIONS (1)
  - Type I hypersensitivity [Unknown]
